FAERS Safety Report 25614149 (Version 1)
Quarter: 2025Q3

REPORT INFORMATION
  Report Type: Spontaneous
  Country: EU (occurrence: EU)
  Receive Date: 20250728
  Receipt Date: 20250728
  Transmission Date: 20251020
  Serious: Yes (Hospitalization)
  Sender: SERVIER
  Company Number: None

PATIENT

DRUGS (5)
  1. ONCASPAR [Suspect]
     Active Substance: PEGASPARGASE
     Indication: Acute lymphocytic leukaemia
     Route: 042
     Dates: start: 20250514, end: 20250514
  2. ONCASPAR [Suspect]
     Active Substance: PEGASPARGASE
     Route: 042
     Dates: start: 20250516, end: 20250516
  3. ONCASPAR [Suspect]
     Active Substance: PEGASPARGASE
     Route: 042
     Dates: start: 20250518, end: 20250518
  4. MEROPENEM [Suspect]
     Active Substance: MEROPENEM
     Indication: Infection
     Dosage: 1 G, TID
     Route: 042
     Dates: start: 20250517, end: 20250521
  5. VINCRISTINE [Suspect]
     Active Substance: VINCRISTINE
     Indication: Acute lymphocytic leukaemia
     Dosage: 2 MG, EVERY 1 WEEK
     Route: 042
     Dates: start: 20250507, end: 20250507

REACTIONS (1)
  - Partial seizures [Recovered/Resolved]

NARRATIVE: CASE EVENT DATE: 20250621
